FAERS Safety Report 15276079 (Version 1)
Quarter: 2018Q3

REPORT INFORMATION
  Report Type: Spontaneous
  Country: US (occurrence: US)
  Receive Date: 20180814
  Receipt Date: 20180814
  Transmission Date: 20181010
  Serious: No
  Sender: FDA-Public Use
  Company Number: US-LEXICON PHARMACEUTICALS, INC-18-1606-00894

PATIENT
  Age: 54 Year
  Sex: Female

DRUGS (21)
  1. LISINOPRIL. [Concomitant]
     Active Substance: LISINOPRIL
  2. SOMATULINE DEPOT [Concomitant]
     Active Substance: LANREOTIDE ACETATE
     Dosage: 90 MG / 0.3 ML
     Route: 058
  3. LEVOTHYROXIN [Concomitant]
     Active Substance: LEVOTHYROXINE
  4. VITAMIN B COMPLEX [Concomitant]
     Active Substance: CYANOCOBALAMIN\DEXPANTHENOL\NIACINAMIDE\PYRIDOXINE HYDROCHLORIDE\RIBOFLAVIN 5^-PHOSPHATE SODIUM\THIAMINE HYDROCHLORIDE\VITAMIN B COMPLEX
  5. KEYTRUDA [Concomitant]
     Active Substance: PEMBROLIZUMAB
     Dosage: 100 MG / 4 ML
     Dates: end: 2018
  6. PREDNISONE. [Concomitant]
     Active Substance: PREDNISONE
  7. METFORMIN [Concomitant]
     Active Substance: METFORMIN HYDROCHLORIDE
  8. KEYTRUDA [Concomitant]
     Active Substance: PEMBROLIZUMAB
     Dosage: 25 MG/ML 200 MG 30 MINUTE IV INFUSION MONTHLY
     Route: 042
     Dates: start: 20171017
  9. BABY ASPIRIN [Concomitant]
     Active Substance: ASPIRIN
  10. METOPROLOL SUCCINATE ER [Concomitant]
     Active Substance: METOPROLOL SUCCINATE
  11. TELOTRISTAT ETHYL [Suspect]
     Active Substance: TELOTRISTAT ETHYL
     Indication: CARCINOID SYNDROME
     Route: 048
     Dates: start: 20180328
  12. NORVASC [Concomitant]
     Active Substance: AMLODIPINE BESYLATE
  13. BENADRYL [Concomitant]
     Active Substance: DIPHENHYDRAMINE HYDROCHLORIDE
  14. LORAZEPAM. [Concomitant]
     Active Substance: LORAZEPAM
  15. LOMOTIL [Concomitant]
     Active Substance: ATROPINE SULFATE\DIPHENOXYLATE HYDROCHLORIDE
  16. LANTUS [Concomitant]
     Active Substance: INSULIN GLARGINE
  17. LOPERAMIDE [Concomitant]
     Active Substance: LOPERAMIDE
  18. PRASUGREL. [Concomitant]
     Active Substance: PRASUGREL
  19. INSULIN [Concomitant]
     Active Substance: INSULIN NOS
  20. ESTER?C [Concomitant]
     Active Substance: CALCIUM\VITAMINS
  21. OMEGA 3 [Concomitant]
     Active Substance: OMEGA-3 FATTY ACIDS

REACTIONS (4)
  - Abdominal pain [Recovering/Resolving]
  - Hepatic enzyme increased [Unknown]
  - Abdominal distension [Recovering/Resolving]
  - Diarrhoea [Recovering/Resolving]

NARRATIVE: CASE EVENT DATE: 2018
